FAERS Safety Report 21096539 (Version 1)
Quarter: 2022Q3

REPORT INFORMATION
  Report Type: Spontaneous
  Country: US (occurrence: US)
  Receive Date: 20220718
  Receipt Date: 20220718
  Transmission Date: 20221027
  Serious: No
  Sender: FDA-Public Use
  Company Number: US-TEVA-2022-US-2054175

PATIENT
  Sex: Male

DRUGS (1)
  1. BUPRENORPHINE [Suspect]
     Active Substance: BUPRENORPHINE
     Indication: Product used for unknown indication
     Dosage: 15 MCG/HOUR
     Route: 062

REACTIONS (3)
  - Feeling abnormal [Recovered/Resolved with Sequelae]
  - Wrong technique in product usage process [Unknown]
  - Drug effect faster than expected [Unknown]
